FAERS Safety Report 6640330-6 (Version None)
Quarter: 2010Q1

REPORT INFORMATION
  Report Type: 
  Country: None (occurrence: None)
  Receive Date: 20100315
  Receipt Date: 20100226
  Transmission Date: 20100710
  Serious: Yes (Hospitalization)
  Sender: FDA-Public Use
  Company Number: 2009003457

PATIENT
  Age: 65 Year
  Sex: Female

DRUGS (6)
  1. ERLOTINIB HYDROCHLORIDE [Suspect]
     Indication: LUNG NEOPLASM MALIGNANT
     Dosage: QD, ORAL
     Route: 048
     Dates: start: 20091008, end: 20091029
  2. GEMCITABINE [Suspect]
     Indication: LUNG NEOPLASM
     Dosage: 1.6 GM, INTRAVENOUS
     Route: 042
     Dates: start: 20090924, end: 20091029
  3. CARBOPLATIN [Suspect]
     Indication: LUNG NEOPLASM MALIGNANT
     Dosage: 450 MG, INTRAVENOUS
     Route: 042
     Dates: start: 20090924
  4. TRAMADOL HCL [Concomitant]
  5. MULTI-VITAMIN [Concomitant]
  6. FERROUS SULFATE TAB [Concomitant]

REACTIONS (7)
  - ANAEMIA [None]
  - ASTHENIA [None]
  - COORDINATION ABNORMAL [None]
  - DECREASED APPETITE [None]
  - DYSPNOEA [None]
  - MUSCULAR WEAKNESS [None]
  - NERVOUS SYSTEM DISORDER [None]
